FAERS Safety Report 19317560 (Version 8)
Quarter: 2023Q1

REPORT INFORMATION
  Report Type: Spontaneous
  Country: PL (occurrence: PL)
  Receive Date: 20210527
  Receipt Date: 20230117
  Transmission Date: 20230417
  Serious: Yes (Death, Hospitalization, Other)
  Sender: FDA-Public Use
  Company Number: PL-002147023-NVSC2021PL105645

PATIENT
  Age: 75 Year
  Sex: Male

DRUGS (22)
  1. ALLOPURINOL [Suspect]
     Active Substance: ALLOPURINOL
     Indication: Product used for unknown indication
     Dosage: 300 MILLIGRAM, ONCE A DAY
     Route: 065
  2. ALLOPURINOL [Suspect]
     Active Substance: ALLOPURINOL
     Dosage: 100 MILLIGRAM ONCE A DAY  IN THE MORNING
     Route: 065
  3. ATORVASTATIN [Suspect]
     Active Substance: ATORVASTATIN
     Indication: Product used for unknown indication
     Dosage: 10 MILLIGRAM,ONCE A DAY  IN THE EVENING
     Route: 065
  4. BISOPROLOL [Suspect]
     Active Substance: BISOPROLOL
     Indication: Product used for unknown indication
     Dosage: 1.88 MILLIGRAM, ONCE A DAY(1.875 MG, QD (1X1.5 TABLET IN THE MORNING) )
     Route: 065
  5. BISOPROLOL [Suspect]
     Active Substance: BISOPROLOL
     Dosage: 1.5 MILLIGRAM, ONCE A DAY
     Route: 065
  6. BISOPROLOL [Suspect]
     Active Substance: BISOPROLOL
     Dosage: 1.25 MG,ONCE A DAY IN THE MORNING
     Route: 065
  7. CLOPIDOGREL [Suspect]
     Active Substance: CLOPIDOGREL BISULFATE
     Indication: Product used for unknown indication
     Dosage: 1 DOSAGE FORM, ONCE A DAY
     Route: 065
     Dates: start: 20191127, end: 20191127
  8. LEVOFLOXACIN [Suspect]
     Active Substance: LEVOFLOXACIN
     Indication: Infective exacerbation of chronic obstructive airways disease
     Dosage: UNK
     Route: 017
  9. RAMIPRIL [Suspect]
     Active Substance: RAMIPRIL
     Indication: Product used for unknown indication
     Dosage: 5 MILLIGRAM, ONCE A DAY, 2.5 MG, BID (1 TABLET (2.5MG) IN THE MORNING AND 1
     Route: 065
  10. RAMIPRIL [Suspect]
     Active Substance: RAMIPRIL
     Dosage: 2.5 MILLIGRAM, TWO TIMES A DAY
     Route: 065
  11. RAMIPRIL [Suspect]
     Active Substance: RAMIPRIL
     Dosage: 1.5 MILLIGRAM, ONCE A DAY(1.5 DF (1 TABLET (2.5 MG IN THE MORNING AND 1/2 TABLET IN THE EVENING)
     Route: 065
  12. AMOXICILLIN [Suspect]
     Active Substance: AMOXICILLIN
     Indication: Product used for unknown indication
     Dosage: 2 GRAM, ONCE A DAY (1 GRAM TWO TIMES A DAY)
     Route: 065
  13. ASPIRIN [Suspect]
     Active Substance: ASPIRIN
     Indication: Myocardial infarction
     Dosage: 75 MILLIGRAM
     Route: 065
  14. OMEPRAZOLE [Suspect]
     Active Substance: OMEPRAZOLE
     Indication: Product used for unknown indication
     Dosage: 20 MILLIGRAM, ONCE A DAY (TABLET ON EMPTY STOMACH)
     Route: 065
  15. ESOMEPRAZOLE [Suspect]
     Active Substance: ESOMEPRAZOLE
     Indication: Product used for unknown indication
     Dosage: 80 MILLIGRAM, ONCE A DAY
     Route: 065
  16. ESOMEPRAZOLE [Suspect]
     Active Substance: ESOMEPRAZOLE
     Dosage: 40 MILLIGRAM  ONCE A DAY (1X1 TABLET IN THE MORNING ON THE EMPTY STOMACH)
     Route: 065
  17. ESOMEPRAZOLE [Suspect]
     Active Substance: ESOMEPRAZOLE
     Dosage: 40 MILLIGRAM  ONCE A DAY (1X1 TABLET IN THE MORNING ON THE EMPTY STOMACH)
     Route: 065
  18. ENTRESTO [Suspect]
     Active Substance: SACUBITRIL\VALSARTAN
     Indication: Product used for unknown indication
     Dosage: 2 DOSAGE FORM, ONCE A DAY (24/26 MG, BID)
  19. ENTRESTO [Suspect]
     Active Substance: SACUBITRIL\VALSARTAN
     Dosage: 100 MILLIGRAM
  20. OMEPRAZOLE [Suspect]
     Active Substance: OMEPRAZOLE
     Indication: Product used for unknown indication
     Dosage: 10 MILLIGRAM, ONCE A DAY ( IN THE MORNING)
     Route: 065
  21. OMEPRAZOLE [Suspect]
     Active Substance: OMEPRAZOLE
     Dosage: 20 MILLIGRAM, ONCE A DAY ( IN THE MORNING)
     Route: 065
  22. TORSEMIDE [Suspect]
     Active Substance: TORSEMIDE
     Indication: Product used for unknown indication
     Dosage: 10 MILLIGRAM, ONCE A DAY ( IN THE MORNING)
     Route: 065

REACTIONS (52)
  - COVID-19 pneumonia [Fatal]
  - Coronary artery stenosis [Unknown]
  - Infective exacerbation of chronic obstructive airways disease [Unknown]
  - Respiratory tract infection [Unknown]
  - Type 2 diabetes mellitus [Unknown]
  - Gastritis erosive [Unknown]
  - Ventricular hypokinesia [Unknown]
  - Degenerative mitral valve disease [Unknown]
  - Cardiac aneurysm [Unknown]
  - Atrial fibrillation [Unknown]
  - Ventricular arrhythmia [Unknown]
  - Chronic kidney disease [Unknown]
  - Mitral valve incompetence [Unknown]
  - Cardiac failure [Unknown]
  - Cataract [Unknown]
  - Ventricular tachycardia [Unknown]
  - Asthenia [Unknown]
  - Pulmonary hypertension [Unknown]
  - Coronary artery disease [Unknown]
  - Gastritis [Unknown]
  - Productive cough [Unknown]
  - Blood glucose increased [Unknown]
  - Exercise tolerance decreased [Unknown]
  - Skin ulcer [Recovered/Resolved]
  - Occult blood [Unknown]
  - Respiratory disorder [Unknown]
  - Eye injury [Unknown]
  - Hiatus hernia [Unknown]
  - Peripheral venous disease [Recovered/Resolved]
  - Nicotine dependence [Unknown]
  - Diarrhoea [Unknown]
  - Inferior vena cava dilatation [Unknown]
  - Oedema peripheral [Recovered/Resolved]
  - Dyspnoea [Unknown]
  - Ventricular enlargement [Unknown]
  - Pulmonary vascular disorder [Unknown]
  - Duodenitis [Unknown]
  - Systolic dysfunction [Unknown]
  - Normocytic anaemia [Unknown]
  - Chest discomfort [Unknown]
  - Heart rate irregular [Unknown]
  - Helicobacter test positive [Unknown]
  - Occult blood positive [Unknown]
  - Angina pectoris [Recovered/Resolved]
  - Blood pressure systolic decreased [Unknown]
  - Cardiac disorder [Unknown]
  - Haematochezia [Unknown]
  - Dyspnoea exertional [Unknown]
  - Cardiac valve disease [Unknown]
  - Melaena [Unknown]
  - Wrong technique in product usage process [Unknown]
  - Disease progression [Unknown]

NARRATIVE: CASE EVENT DATE: 20180601
